FAERS Safety Report 8783665 (Version 1)
Quarter: 2012Q4

REPORT INFORMATION
  Report Type: Report from Study
  Country: US (occurrence: US)
  Receive Date: 20120913
  Receipt Date: 20120913
  Transmission Date: 20130627
  Serious: No
  Sender: FDA-Public Use
  Company Number: US-VERTEX PHARMACEUTICAL INC.-AE-2012-008816

PATIENT

DRUGS (14)
  1. INCIVEK [Suspect]
     Indication: HEPATITIS C
     Route: 048
     Dates: start: 20120502, end: 20120618
  2. PEGASYS [Concomitant]
     Indication: HEPATITIS C
     Route: 058
     Dates: start: 20120502, end: 20120617
  3. RIBAVIRIN [Concomitant]
     Indication: HEPATITIS C
     Dates: start: 20120502, end: 20120618
  4. UROXATRAL [Concomitant]
     Route: 048
  5. AMBIEN [Concomitant]
     Route: 048
  6. LOSARTAN POTASSIUM [Concomitant]
     Route: 048
  7. NORVASC [Concomitant]
     Route: 048
  8. TRAMADOL HCL [Concomitant]
     Route: 048
  9. NEXIUM DR [Concomitant]
     Route: 048
  10. SELENIUM [Concomitant]
     Route: 048
  11. B COMPLEX [Concomitant]
     Route: 048
  12. MILK THISTLE [Concomitant]
  13. VITAMIN E [Concomitant]
     Route: 048
  14. SAW PALMETTO [Concomitant]
     Route: 048

REACTIONS (9)
  - Dyspnoea [Unknown]
  - Pain [Unknown]
  - Muscular weakness [Unknown]
  - Dizziness [Unknown]
  - Vision blurred [Unknown]
  - Dry eye [Unknown]
  - Eye irritation [Unknown]
  - Gait disturbance [Unknown]
  - Fatigue [Unknown]
